FAERS Safety Report 7737299-X (Version None)
Quarter: 2011Q3

REPORT INFORMATION
  Report Type: 
  Country: None (occurrence: None)
  Receive Date: 20110908
  Receipt Date: 20110830
  Transmission Date: 20111222
  Serious: Yes (Other)
  Sender: FDA-Public Use
  Company Number: US-SANOFI-AVENTIS-2011SA049879

PATIENT
  Sex: Female

DRUGS (2)
  1. LANTUS [Suspect]
     Dosage: DOSE:32 UNIT(S)
     Route: 058
  2. SOLOSTAR [Suspect]

REACTIONS (5)
  - SLEEP APNOEA SYNDROME [None]
  - PRODUCT QUALITY ISSUE [None]
  - NARCOLEPSY [None]
  - DRUG INEFFECTIVE [None]
  - BLOOD GLUCOSE INCREASED [None]
